FAERS Safety Report 10926985 (Version 1)
Quarter: 2015Q1

REPORT INFORMATION
  Report Type: Spontaneous
  Country: US (occurrence: None)
  Receive Date: 20150316
  Receipt Date: 20150316
  Transmission Date: 20150721
  Serious: Yes (Life-Threatening)
  Sender: FDA-Public Use
  Company Number: INT_00712_2015

PATIENT

DRUGS (7)
  1. PACLITAXEL ( HQ SPECIALTY) [Suspect]
     Active Substance: PACLITAXEL
     Indication: NON-SMALL CELL LUNG CANCER STAGE III
     Dosage: ESCLATING DOSE ON DAY 2 OF CYCLE) INTRAVENOUS (NOT OTHERWISE SPECIFIED), (INTRAVENOUS (NOT OTHERWISE SPECIFIED))
     Route: 042
  2. BORTEZOMIB [Suspect]
     Active Substance: BORTEZOMIB
     Indication: NON-SMALL CELL LUNG CANCER STAGE III
     Dosage: ESCALATING DOSE ON DAYS 1, 4, 8 AND 11 OF CYCLE} INTRAVENOUS (NOT OTHERWISE SPECIFIED).,
     Route: 042
  3. BACTRIM [Concomitant]
     Active Substance: SULFAMETHOXAZOLE\TRIMETHOPRIM
  4. CARBOPLATIN. [Suspect]
     Active Substance: CARBOPLATIN
     Indication: NON-SMALL CELL LUNG CANCER STAGE III
     Dosage: ESCALTING DOSE ON DAY 2 OF CYCLE] INTRAVENOUS (NOT OTHERWISE SPECIFIED)), [AUC OF 6 FOR 2 CYCELS] INTRAVENOUS (NOT OTHERWISE SPECIFIED))
     Route: 042
  5. RADIATION [Suspect]
     Active Substance: RADIATION THERAPY
     Indication: NON-SMALL CELL LUNG CANCER STAGE III
     Dosage: 60 GY/30 DAILY FRACTIONS (DF)
  6. DEXAMETHASONE. [Concomitant]
     Active Substance: DEXAMETHASONE
  7. DIPHENHYDRAMINE HCL [Concomitant]
     Active Substance: DIPHENHYDRAMINE HYDROCHLORIDE

REACTIONS (1)
  - Blood sodium decreased [None]
